FAERS Safety Report 21988026 (Version 2)
Quarter: 2023Q2

REPORT INFORMATION
  Report Type: Other
  Country: US (occurrence: None)
  Receive Date: 20230214
  Receipt Date: 20230518
  Transmission Date: 20230722
  Serious: Yes (Other)
  Sender: FDA-Public Use
  Company Number: US-ROCHE-3283335

PATIENT
  Age: 68 Year
  Sex: Male

DRUGS (1)
  1. XELODA [Suspect]
     Active Substance: CAPECITABINE
     Indication: Neoplasm malignant
     Dosage: TAKE 3 TABLETS BY MOUTH TWICE A DAY 2 WEEKS ON, 2 WEEKS OFF
     Route: 048

REACTIONS (2)
  - Hand fracture [Unknown]
  - Road traffic accident [Unknown]
